FAERS Safety Report 5798947-7 (Version None)
Quarter: 2008Q3

REPORT INFORMATION
  Report Type: 
  Country: None (occurrence: None)
  Receive Date: 20080701
  Receipt Date: 20080620
  Transmission Date: 20090109
  Serious: Yes (Other)
  Sender: FDA-Public Use
  Company Number: 2007S1012942

PATIENT
  Age: 38 Year
  Sex: Female
  Weight: 56.6996 kg

DRUGS (10)
  1. PHENYTOIN [Suspect]
     Indication: CONVULSION
     Dosage: 200 MG; AT BEDTIME; ORAL
     Route: 048
     Dates: start: 20070601, end: 20070919
  2. WARFARIN SODIUM [Concomitant]
  3. CELLCEPT [Concomitant]
  4. PROGRAF [Concomitant]
  5. PREDNISOLONE [Concomitant]
  6. NORVASC [Concomitant]
  7. LAMICTAL [Concomitant]
  8. KEPPRA [Concomitant]
  9. FERROUS SULFATE TAB [Concomitant]
  10. MAGNESIUM OXIDE [Concomitant]

REACTIONS (6)
  - CONVULSION [None]
  - GRAND MAL CONVULSION [None]
  - HEART RATE INCREASED [None]
  - PALPITATIONS [None]
  - RENAL TRANSPLANT [None]
  - RETCHING [None]
